FAERS Safety Report 6292723-7 (Version None)
Quarter: 2009Q3

REPORT INFORMATION
  Report Type: 
  Country: None (occurrence: None)
  Receive Date: 20090731
  Receipt Date: 20090729
  Transmission Date: 20100115
  Serious: Yes (Other)
  Sender: FDA-Public Use
  Company Number: A0799401A

PATIENT
  Age: 54 Year
  Sex: Female
  Weight: 65 kg

DRUGS (1)
  1. AVAMYS [Suspect]
     Indication: DRUG USE FOR UNKNOWN INDICATION
     Dosage: 27MCG PER DAY
     Route: 045

REACTIONS (4)
  - ASTHMA [None]
  - COUGH [None]
  - EPISTAXIS [None]
  - MUCOSAL DRYNESS [None]
